FAERS Safety Report 23747585 (Version 1)
Quarter: 2024Q2

REPORT INFORMATION
  Report Type: Spontaneous
  Country: US (occurrence: None)
  Receive Date: 20240415
  Receipt Date: 20240415
  Transmission Date: 20240715
  Serious: Yes (Hospitalization)
  Sender: FDA-Public Use
  Company Number: None

PATIENT
  Sex: Female

DRUGS (1)
  1. TOBRAMYCIN [Suspect]
     Active Substance: TOBRAMYCIN\TOBRAMYCIN SULFATE
     Indication: Bronchiectasis
     Dosage: FREQUENCY : TWICE A DAY;?OTHER ROUTE : NEBULIZER;?
     Route: 050
     Dates: start: 202401

REACTIONS (2)
  - Cardiac disorder [None]
  - Lung disorder [None]
